FAERS Safety Report 6992565-0 (Version None)
Quarter: 2010Q3

REPORT INFORMATION
  Report Type: 
  Country: None (occurrence: None)
  Receive Date: 20100917
  Receipt Date: 20100906
  Transmission Date: 20110219
  Serious: Yes (Death, Other)
  Sender: FDA-Public Use
  Company Number: US-ROCHE-725721

PATIENT

DRUGS (5)
  1. MYCOPHENOLATE MOFETIL [Suspect]
     Route: 065
  2. AZATHIOPRINE [Suspect]
     Route: 065
  3. TACROLIMUS [Suspect]
     Route: 065
  4. CYCLOSPORINE [Suspect]
     Route: 065
  5. PREDNISOLONE [Suspect]
     Route: 065

REACTIONS (15)
  - ADENOVIRUS INFECTION [None]
  - APLASTIC ANAEMIA [None]
  - ARRHYTHMIA [None]
  - CORONARY ARTERY DISEASE [None]
  - CYTOMEGALOVIRUS MYOCARDITIS [None]
  - ENTEROVIRUS INFECTION [None]
  - EPSTEIN-BARR VIRUS INFECTION [None]
  - ERYTHEMA INFECTIOSUM [None]
  - GRAFT LOSS [None]
  - LEUKOPENIA [None]
  - MULTI-ORGAN FAILURE [None]
  - NEOPLASM MALIGNANT [None]
  - PULMONARY VEIN STENOSIS [None]
  - SEPSIS [None]
  - TRANSPLANT REJECTION [None]
